FAERS Safety Report 17435226 (Version 2)
Quarter: 2020Q1

REPORT INFORMATION
  Report Type: Spontaneous
  Country: EG (occurrence: EG)
  Receive Date: 20200219
  Receipt Date: 20200219
  Transmission Date: 20200409
  Serious: Yes (Other)
  Sender: FDA-Public Use
  Company Number: EG-PFIZER INC-2020062250

PATIENT
  Age: 13 Year
  Sex: Female

DRUGS (1)
  1. SILDENAFIL CITRATE. [Suspect]
     Active Substance: SILDENAFIL CITRATE
     Dosage: UNK

REACTIONS (2)
  - Cyanosis [Recovering/Resolving]
  - Dyspnoea [Recovering/Resolving]
